FAERS Safety Report 7721681-0 (Version None)
Quarter: 2011Q3

REPORT INFORMATION
  Report Type: 
  Country: None (occurrence: None)
  Receive Date: 20110831
  Receipt Date: 20110823
  Transmission Date: 20111222
  Serious: Yes (Death)
  Sender: FDA-Public Use
  Company Number: US-GLAXOSMITHKLINE-A0942764A

PATIENT
  Age: 88 Year
  Sex: Female

DRUGS (1)
  1. RYTHMOL SR [Suspect]
     Dosage: 225MG UNKNOWN
     Route: 065
     Dates: start: 20100929

REACTIONS (1)
  - DEATH [None]
